FAERS Safety Report 20022683 (Version 2)
Quarter: 2022Q2

REPORT INFORMATION
  Report Type: Spontaneous
  Country: FR (occurrence: FR)
  Receive Date: 20211102
  Receipt Date: 20220404
  Transmission Date: 20220720
  Serious: Yes (Hospitalization)
  Sender: FDA-Public Use
  Company Number: FR-PFIZER INC-202101303459

PATIENT
  Age: 56 Year
  Sex: Female
  Weight: 66 kg

DRUGS (20)
  1. LETROZOLE [Suspect]
     Active Substance: LETROZOLE
     Indication: Breast cancer metastatic
     Dosage: 2.5 MILLIGRAM
     Route: 048
     Dates: start: 20181031
  2. LETROZOLE [Suspect]
     Active Substance: LETROZOLE
     Dosage: 2.5 MILLIGRAM
     Route: 048
     Dates: start: 20210730
  3. SERTRALINE [Suspect]
     Active Substance: SERTRALINE HYDROCHLORIDE
     Indication: Depression
     Dosage: UNK
     Route: 048
  4. ZOLOFT [Suspect]
     Active Substance: SERTRALINE HYDROCHLORIDE
     Indication: Depression
     Dosage: 150 MILLIGRAM, ONCE A DAY (150 MG (50 MG X 3 DF) , 1X/DAY DURING MEAL )
     Route: 048
  5. AZELASTINE [Concomitant]
     Active Substance: AZELASTINE
     Indication: Product used for unknown indication
     Dosage: 2 DROP, ONCE A DAY (1 DROP, 2X/DAY TO 4X/DAY )
     Route: 065
  6. BECLOMETHASONE DIPROPIONATE [Concomitant]
     Active Substance: BECLOMETHASONE DIPROPIONATE
     Indication: Product used for unknown indication
     Dosage: UNK, ONCE A DAY (1 PULVERISATION, 1X/DAY IN EACH NOSTRIL )
     Route: 065
  7. DAFALGAN [Concomitant]
     Active Substance: ACETAMINOPHEN
     Indication: Product used for unknown indication
     Dosage: 1 GRAM ( AS NECESSARY) ( 1 G, AS NEEDED )
     Route: 065
  8. BILASTINE [Concomitant]
     Active Substance: BILASTINE
     Indication: Product used for unknown indication
     Dosage: 20 MILLIGRAM, ONCE A DAY (20 MG, 1X/DAY )
     Route: 065
  9. LEVOTHYROXINE [Concomitant]
     Active Substance: LEVOTHYROXINE
     Indication: Hypothyroidism
     Dosage: 1 DOSAGE FORM, ONCE A DAY (1 DF (50 MG AS REPORTED), 1X/DAY 1-0-0 )
     Route: 048
  10. MAXIDEX [Concomitant]
     Active Substance: DEXAMETHASONE
     Indication: Product used for unknown indication
     Dosage: 3.5 GRAM (TUBE OF 3.5G )
     Route: 047
  11. PALBOCICLIB [Concomitant]
     Active Substance: PALBOCICLIB
     Indication: Breast cancer metastatic
     Dosage: 100 MILLIGRAM
     Route: 048
     Dates: start: 20181031
  12. PALBOCICLIB [Concomitant]
     Active Substance: PALBOCICLIB
     Dosage: 100 MILLIGRAM
     Route: 048
     Dates: start: 20210730
  13. PRAVASTATIN [Concomitant]
     Active Substance: PRAVASTATIN
     Indication: Product used for unknown indication
     Dosage: 1 DOSAGE FORM, ONCE A DAY (1 DF, 1X/DAY 0-0-1 )
     Route: 048
  14. FLUDROCORTISONE ACETATE\LIDOCAINE HYDROCHLORIDE\NEOMYCIN SULFATE\POLYM [Concomitant]
     Active Substance: FLUDROCORTISONE ACETATE\LIDOCAINE HYDROCHLORIDE\NEOMYCIN SULFATE\POLYMYXIN B SULFATE
     Indication: Product used for unknown indication
     Dosage: 8 DROP, ONCE A DAY (4 DROP, 2X/DAY MORNING AND EVENING IN EAR WASH DURING FEW MINUTES )
     Route: 001
  15. CYSTINE\RETINOL\SULFUR [Concomitant]
     Active Substance: CYSTINE\RETINOL\SULFUR
     Indication: Product used for unknown indication
     Dosage: UNK, ONCE A DAY (UNK, 3X/DAY 3-0-0 )
     Route: 065
  16. PHLOROGLUCINOL [Concomitant]
     Active Substance: PHLOROGLUCINOL
     Indication: Product used for unknown indication
     Dosage: 160 MILLIGRAM (AS NECESSARY)
     Route: 065
  17. DESONIDE [Concomitant]
     Active Substance: DESONIDE
     Indication: Product used for unknown indication
     Dosage: UNK
     Route: 061
  18. TRIMEBUTINE [Concomitant]
     Active Substance: TRIMEBUTINE
     Indication: Product used for unknown indication
     Dosage: 600 MILLIGRAM, ONCE A DAY (200 MG, 3X/DAY 1-1-1 )
     Route: 065
  19. TEGRETOL [Concomitant]
     Active Substance: CARBAMAZEPINE
     Indication: Product used for unknown indication
     Dosage: 400 MILLIGRAM, ONCE A DAY (1 DF (400MG), 1X/DAY DURING OR AFTER MEAL )
     Route: 065
  20. KETOTIFEN FUMARATE [Concomitant]
     Active Substance: KETOTIFEN FUMARATE
     Indication: Product used for unknown indication
     Dosage: 2 DROP, ONCE A DAY (1 DROP, 2X/DAY 1-0-1 )
     Route: 065

REACTIONS (3)
  - Headache [Recovered/Resolved]
  - Hyponatraemia [Recovered/Resolved]
  - Nausea [Recovered/Resolved]

NARRATIVE: CASE EVENT DATE: 20210730
